FAERS Safety Report 13920631 (Version 1)
Quarter: 2017Q3

REPORT INFORMATION
  Report Type: Spontaneous
  Country: US (occurrence: US)
  Receive Date: 20170830
  Receipt Date: 20170830
  Transmission Date: 20171127
  Serious: No
  Sender: FDA-Public Use
  Company Number: None

PATIENT
  Age: 51 Year
  Sex: Female
  Weight: 103.5 kg

DRUGS (5)
  1. CLARON [Concomitant]
  2. BUPROPION HYDROCHLORIDE XL [Suspect]
     Active Substance: BUPROPION HYDROCHLORIDE
     Indication: SUICIDAL IDEATION
     Dosage: ?          QUANTITY:1 TABLET(S);?
     Route: 048
     Dates: start: 20170817, end: 20170827
  3. BUPROPION HYDROCHLORIDE XL [Suspect]
     Active Substance: BUPROPION HYDROCHLORIDE
     Indication: DEPRESSION
     Dosage: ?          QUANTITY:1 TABLET(S);?
     Route: 048
     Dates: start: 20170817, end: 20170827
  4. SYNTHROID [Concomitant]
     Active Substance: LEVOTHYROXINE SODIUM
  5. DEXILANT [Concomitant]
     Active Substance: DEXLANSOPRAZOLE

REACTIONS (6)
  - Product substitution issue [None]
  - Anger [None]
  - Suicidal ideation [None]
  - Loss of personal independence in daily activities [None]
  - Disease recurrence [None]
  - Impaired work ability [None]

NARRATIVE: CASE EVENT DATE: 20170817
